FAERS Safety Report 6037770-5 (Version None)
Quarter: 2009Q1

REPORT INFORMATION
  Report Type: 
  Country: None (occurrence: None)
  Receive Date: 20090113
  Receipt Date: 20081229
  Transmission Date: 20090719
  Serious: No
  Sender: FDA-Public Use
  Company Number: 2008SP015323

PATIENT
  Age: 54 Year
  Sex: Female
  Weight: 63.5036 kg

DRUGS (11)
  1. MIRALAX [Suspect]
     Indication: CONSTIPATION
     Dosage: 17 GM;BID;PO;  0.5 DF; PO;  0.5 DF; QAM; PO
     Route: 048
     Dates: start: 20080515, end: 20080711
  2. MIRALAX [Suspect]
     Indication: DRUG THERAPY
     Dosage: 17 GM;BID;PO;  0.5 DF; PO;  0.5 DF; QAM; PO
     Route: 048
     Dates: start: 20080515, end: 20080711
  3. MIRALAX [Suspect]
     Indication: CONSTIPATION
     Dosage: 17 GM;BID;PO;  0.5 DF; PO;  0.5 DF; QAM; PO
     Route: 048
     Dates: start: 20080717, end: 20080822
  4. MIRALAX [Suspect]
     Indication: DRUG THERAPY
     Dosage: 17 GM;BID;PO;  0.5 DF; PO;  0.5 DF; QAM; PO
     Route: 048
     Dates: start: 20080717, end: 20080822
  5. MIRALAX [Suspect]
     Indication: CONSTIPATION
     Dosage: 17 GM;BID;PO;  0.5 DF; PO;  0.5 DF; QAM; PO
     Route: 048
     Dates: start: 20081125
  6. MIRALAX [Suspect]
     Indication: DRUG THERAPY
     Dosage: 17 GM;BID;PO;  0.5 DF; PO;  0.5 DF; QAM; PO
     Route: 048
     Dates: start: 20081125
  7. LISINOPRIL [Concomitant]
  8. PREMARIN [Concomitant]
  9. ELAVIL [Concomitant]
  10. ASPIRIN [Concomitant]
  11. HYDROCORTISONE/00028602 [Concomitant]

REACTIONS (6)
  - FOOD ALLERGY [None]
  - HYPERSENSITIVITY [None]
  - LIP BLISTER [None]
  - PRODUCT QUALITY ISSUE [None]
  - SKIN EXFOLIATION [None]
  - SUNBURN [None]
